FAERS Safety Report 15533281 (Version 1)
Quarter: 2020Q3

REPORT INFORMATION
  Report Type: Report from Study
  Country: US (occurrence: US)
  Receive Date: 20181019
  Receipt Date: 20181019
  Transmission Date: 20201104
  Serious: Yes (Hospitalization)
  Sender: FDA-Public Use
  Company Number: US-JNJFOC-20180936046

PATIENT

DRUGS (38)
  1. ZOMETA [Concomitant]
     Active Substance: ZOLEDRONIC ACID
     Indication: PLASMA CELL MYELOMA
     Route: 042
     Dates: start: 20170517
  2. BENADRYL [Concomitant]
     Active Substance: DIPHENHYDRAMINE HYDROCHLORIDE
     Indication: PRURITUS
     Route: 048
     Dates: start: 20180406
  3. SPIRIVA [Concomitant]
     Active Substance: TIOTROPIUM BROMIDE MONOHYDRATE
     Indication: CHRONIC OBSTRUCTIVE PULMONARY DISEASE
     Route: 055
     Dates: start: 201602
  4. TYLENOL [Concomitant]
     Active Substance: ACETAMINOPHEN
     Indication: JOINT STIFFNESS
     Route: 048
     Dates: start: 20170623
  5. TYLENOL [Concomitant]
     Active Substance: ACETAMINOPHEN
     Indication: MYALGIA
     Dosage: ONCE BEFORE DARATUMUMAB
     Route: 048
     Dates: start: 20180214
  6. DEXAMETHASONE. [Concomitant]
     Active Substance: DEXAMETHASONE
     Indication: PREMEDICATION
     Dosage: ONCE BEFORE DARATUMUMAB
     Route: 042
     Dates: start: 20180214
  7. BENADRYL [Concomitant]
     Active Substance: DIPHENHYDRAMINE HYDROCHLORIDE
     Indication: PREMEDICATION
     Dosage: ONCE BEFORE DARATUMUMAB
     Route: 042
     Dates: start: 20180214
  8. DARATUMUMAB [Suspect]
     Active Substance: DARATUMUMAB
     Indication: PLASMA CELL MYELOMA
     Route: 065
  9. DEXAMETHASONE. [Concomitant]
     Active Substance: DEXAMETHASONE
     Indication: PLASMA CELL MYELOMA
     Route: 048
  10. SENNA [Concomitant]
     Active Substance: SENNA LEAF\SENNOSIDES\SENNOSIDES A AND B
     Indication: CONSTIPATION
     Dosage: 1?2 TABLETS AS NEEDED
     Route: 048
     Dates: start: 20170514
  11. TYLENOL [Concomitant]
     Active Substance: ACETAMINOPHEN
     Indication: MYALGIA
     Route: 048
     Dates: start: 20180515
  12. TYLENOL [Concomitant]
     Active Substance: ACETAMINOPHEN
     Indication: JOINT STIFFNESS
     Dosage: ONCE BEFORE DARATUMUMAB
     Route: 048
     Dates: start: 20180214
  13. TYLENOL [Concomitant]
     Active Substance: ACETAMINOPHEN
     Indication: JOINT STIFFNESS
     Route: 048
     Dates: start: 20180515
  14. IMODIUM [Concomitant]
     Active Substance: LOPERAMIDE HYDROCHLORIDE
     Indication: DIARRHOEA
     Route: 048
     Dates: start: 20170817
  15. DARATUMUMAB [Suspect]
     Active Substance: DARATUMUMAB
     Route: 065
  16. NICOTINE. [Concomitant]
     Active Substance: NICOTINE
     Indication: SMOKING CESSATION THERAPY
     Route: 048
     Dates: start: 200811
  17. BORTEZOMIB. [Concomitant]
     Active Substance: BORTEZOMIB
     Indication: PLASMA CELL MYELOMA
     Route: 058
  18. PREVACID [Concomitant]
     Active Substance: LANSOPRAZOLE
     Indication: GASTRITIS PROPHYLAXIS
     Route: 048
     Dates: start: 20170518
  19. TYLENOL [Concomitant]
     Active Substance: ACETAMINOPHEN
     Indication: MYALGIA
     Route: 048
     Dates: start: 20170623
  20. TYLENOL [Concomitant]
     Active Substance: ACETAMINOPHEN
     Indication: NEURALGIA
     Route: 048
     Dates: start: 20170623
  21. TYLENOL [Concomitant]
     Active Substance: ACETAMINOPHEN
     Indication: NEURALGIA
     Dosage: ONCE BEFORE DARATUMUMAB
     Route: 048
     Dates: start: 20180214
  22. TYLENOL [Concomitant]
     Active Substance: ACETAMINOPHEN
     Indication: NEURALGIA
     Route: 048
     Dates: start: 20180515
  23. CARDIZEM [Concomitant]
     Active Substance: DILTIAZEM HYDROCHLORIDE
     Indication: SUPRAVENTRICULAR TACHYCARDIA
     Route: 048
     Dates: start: 20171111
  24. ACYCLOVIR. [Concomitant]
     Active Substance: ACYCLOVIR
     Indication: ANTIVIRAL PROPHYLAXIS
     Route: 048
     Dates: start: 20171130
  25. CYCLOPHOSPHAMIDE. [Concomitant]
     Active Substance: CYCLOPHOSPHAMIDE
     Indication: PLASMA CELL MYELOMA
  26. VITAMIN D3 [Concomitant]
     Active Substance: CHOLECALCIFEROL
     Indication: NUTRITIONAL SUPPLEMENTATION
     Route: 048
     Dates: start: 201411
  27. LYRICA [Concomitant]
     Active Substance: PREGABALIN
     Indication: PAIN
     Route: 048
     Dates: start: 20170412
  28. VENTOLIN HFA [Concomitant]
     Active Substance: ALBUTEROL SULFATE
     Indication: CHRONIC OBSTRUCTIVE PULMONARY DISEASE
     Dosage: EVERY 6 HOURS AS NEEDED
     Route: 055
     Dates: start: 201311
  29. EMLA [Concomitant]
     Active Substance: LIDOCAINE\PRILOCAINE
     Indication: PAIN PROPHYLAXIS
     Dosage: THIN LAYER
     Route: 061
     Dates: start: 20170508
  30. MONTELUKAST [Concomitant]
     Active Substance: MONTELUKAST SODIUM
     Indication: PREMEDICATION
     Dosage: ALL DAYS OF DARATUMUMAB
     Route: 048
     Dates: start: 20170516
  31. ZOMETA [Concomitant]
     Active Substance: ZOLEDRONIC ACID
     Indication: PROPHYLAXIS
     Route: 042
     Dates: start: 20170517
  32. COMPAZINE [Concomitant]
     Active Substance: PROCHLORPERAZINE MALEATE
     Indication: NAUSEA
     Dosage: EVERY 6 HOURS AS NEEDED
     Route: 048
     Dates: start: 20170524
  33. MILK OF MAGNESIA [Concomitant]
     Active Substance: MAGNESIUM HYDROXIDE
     Indication: CONSTIPATION
     Route: 048
     Dates: start: 20170709
  34. ACYCLOVIR. [Concomitant]
     Active Substance: ACYCLOVIR
     Indication: ANTIVIRAL PROPHYLAXIS
     Route: 048
     Dates: start: 20180418
  35. MAGNESIUM OXIDE. [Concomitant]
     Active Substance: MAGNESIUM OXIDE
     Indication: HYPOMAGNESAEMIA
     Route: 048
     Dates: start: 20180410
  36. DULERA [Concomitant]
     Active Substance: FORMOTEROL FUMARATE DIHYDRATE\MOMETASONE FUROATE
     Indication: CHRONIC OBSTRUCTIVE PULMONARY DISEASE
     Route: 055
     Dates: start: 201602
  37. POTASSIUM [Concomitant]
     Active Substance: POTASSIUM
     Indication: NUTRITIONAL SUPPLEMENTATION
     Route: 048
     Dates: start: 20180214
  38. BENADRYL [Concomitant]
     Active Substance: DIPHENHYDRAMINE HYDROCHLORIDE
     Indication: RASH PUSTULAR
     Route: 048
     Dates: start: 20180406

REACTIONS (1)
  - Chronic obstructive pulmonary disease [Recovered/Resolved]

NARRATIVE: CASE EVENT DATE: 20180925
